FAERS Safety Report 10443720 (Version 2)
Quarter: 2014Q3

REPORT INFORMATION
  Report Type: Spontaneous
  Country: FR (occurrence: FR)
  Receive Date: 20140910
  Receipt Date: 20140910
  Transmission Date: 20150326
  Serious: Yes (Life-Threatening, Hospitalization)
  Sender: FDA-Public Use
  Company Number: PHHY2014FR047707

PATIENT
  Age: 65 Year
  Sex: Female

DRUGS (2)
  1. EVEROLIMUS [Suspect]
     Active Substance: EVEROLIMUS
     Indication: BREAST CANCER
  2. QUINAPRIL [Interacting]
     Active Substance: QUINAPRIL\QUINAPRIL HYDROCHLORIDE
     Indication: HYPERTENSION

REACTIONS (6)
  - Dyspnoea [Unknown]
  - Macroglossia [Unknown]
  - Angioedema [Recovering/Resolving]
  - Face oedema [Unknown]
  - Upper airway obstruction [Recovering/Resolving]
  - Tongue oedema [Unknown]
